FAERS Safety Report 22384967 (Version 1)
Quarter: 2023Q2

REPORT INFORMATION
  Report Type: Spontaneous
  Country: US (occurrence: US)
  Receive Date: 20230530
  Receipt Date: 20230530
  Transmission Date: 20230722
  Serious: No
  Sender: FDA-Public Use
  Company Number: US-SCIEGENP-2023SCSPO00234

PATIENT

DRUGS (1)
  1. BUPROPION HYDROCHLORIDE [Suspect]
     Active Substance: BUPROPION HYDROCHLORIDE
     Indication: Mental disorder
     Route: 065

REACTIONS (7)
  - Brain fog [Unknown]
  - Retching [Unknown]
  - Dyspepsia [Unknown]
  - Crying [Unknown]
  - Nausea [Unknown]
  - Headache [Unknown]
  - Product odour abnormal [Unknown]
